FAERS Safety Report 8603252 (Version 4)
Quarter: 2012Q4

REPORT INFORMATION
  Report Type: 
  Country: US (occurrence: US)
  Receive Date: 20120607
  Receipt Date: 20120831
  Transmission Date: 20130627
  Serious: Yes (Life-Threatening, Hospitalization, Other)
  Sender: FDA-Public Use
  Company Number: US-MILLENNIUM PHARMACEUTICALS, INC.-2012-03990

PATIENT
  Age: 6 Year
  Sex: Female
  Weight: 21 kg

DRUGS (5)
  1. VELCADE [Suspect]
     Indication: ACUTE MYELOID LEUKAEMIA
     Dosage: 1.3 mg/m2, Cyclic
     Route: 040
     Dates: start: 20120529, end: 20120602
  2. CYTARABINE [Suspect]
     Indication: ACUTE MYELOID LEUKAEMIA
     Dosage: 70 mg, Cyclic
     Route: 037
     Dates: start: 20120529, end: 20120607
  3. CYTARABINE [Suspect]
     Dosage: 100 mg/m2, Cyclic
     Route: 042
     Dates: start: 20120529, end: 20120601
  4. ETOPOSIDE [Suspect]
     Indication: ACUTE MYELOID LEUKAEMIA
     Dosage: 100 mg/m2, Cyclic
     Route: 042
     Dates: start: 20120529, end: 20120602
  5. DAUNORUBICIN HYDROCHLORIDE [Suspect]
     Indication: ACUTE MYELOID LEUKAEMIA
     Dosage: 50 mg/m2, Cyclic
     Route: 042
     Dates: start: 20120529, end: 20120603

REACTIONS (11)
  - Respiratory failure [Unknown]
  - Acute respiratory distress syndrome [Recovered/Resolved]
  - Hypotension [Unknown]
  - Hypoxia [Unknown]
  - Pulmonary oedema [Unknown]
  - Lung infection [Unknown]
  - Caecitis [Recovered/Resolved]
  - Activated partial thromboplastin time prolonged [Unknown]
  - Alanine aminotransferase increased [Recovered/Resolved]
  - Aspartate aminotransferase increased [Recovered/Resolved]
  - Blood fibrinogen decreased [Not Recovered/Not Resolved]
